FAERS Safety Report 4459304-9 (Version None)
Quarter: 2004Q3

REPORT INFORMATION
  Report Type: 
  Country: None (occurrence: None)
  Receive Date: 20040927
  Receipt Date: 20040915
  Transmission Date: 20050211
  Serious: Yes (Hospitalization, Other)
  Sender: FDA-Public Use
  Company Number: ES-BRISTOL-MYERS SQUIBB COMPANY-12702973

PATIENT
  Age: 37 Year
  Sex: Male

DRUGS (3)
  1. ATAZANAVIR [Suspect]
     Indication: HIV INFECTION
     Route: 048
     Dates: start: 20040618
  2. METHADONE HCL [Concomitant]
     Dates: start: 19990119
  3. MILTEFOSINE [Concomitant]
     Dates: start: 20031102

REACTIONS (1)
  - ASCITES [None]
